FAERS Safety Report 21197625 (Version 3)
Quarter: 2022Q3

REPORT INFORMATION
  Report Type: Spontaneous
  Country: US (occurrence: US)
  Receive Date: 20220810
  Receipt Date: 20220911
  Transmission Date: 20221026
  Serious: No
  Sender: FDA-Public Use
  Company Number: US-SANOFI-01221631

PATIENT
  Age: 66 Year
  Sex: Female

DRUGS (1)
  1. SOLIQUA 100/33 [Suspect]
     Active Substance: INSULIN GLARGINE\LIXISENATIDE
     Indication: Type 2 diabetes mellitus
     Dosage: QD (22- 30 IU DEPENDING ON HER BLOOD SUGAR)

REACTIONS (4)
  - Blood glucose increased [Unknown]
  - Dizziness [Unknown]
  - Lethargy [Unknown]
  - Fatigue [Unknown]
